FAERS Safety Report 6165503-0 (Version None)
Quarter: 2009Q2

REPORT INFORMATION
  Report Type: 
  Country: None (occurrence: None)
  Receive Date: 20090423
  Receipt Date: 20090420
  Transmission Date: 20091009
  Serious: Yes (Death, Other)
  Sender: FDA-Public Use
  Company Number: IE-WYE-G02995009

PATIENT
  Sex: Male

DRUGS (20)
  1. RELISTOR [Suspect]
     Dates: start: 20081203, end: 20081207
  2. RELISTOR [Suspect]
     Dates: start: 20081208, end: 20081208
  3. RELISTOR [Suspect]
     Dates: start: 20081213, end: 20081225
  4. RELISTOR [Suspect]
     Dates: start: 20090110, end: 20090110
  5. BISACODYL [Concomitant]
     Dates: start: 20081208, end: 20081209
  6. DOLMATIL [Concomitant]
     Dates: start: 20081203
  7. OXYCODONE HCL [Concomitant]
     Dosage: 160 MG CONTINUOUS SUBCUTANEOUS INFUSION
     Dates: start: 20081203, end: 20081203
  8. OXYCODONE HCL [Concomitant]
     Dosage: 120 MG CONTINUOUS SUBCUTANEOUS INFUSION
     Dates: start: 20081204
  9. DEXAMETHASONE [Concomitant]
     Dosage: 6 MG FREQUENCY UNKNOWN
  10. ZOTON FASTAB [Concomitant]
     Dosage: UNKNOWN
  11. LYRICA [Concomitant]
     Dosage: UNKNOWN
  12. INNOHEP [Concomitant]
     Dosage: UNKNOWN
  13. MYCOSTATIN [Concomitant]
     Dosage: UNKNOWN
  14. NASONEX [Concomitant]
     Dosage: UNKNOWN
  15. BENZATHINE PENICILLIN G [Concomitant]
     Dosage: UNKNOWN
  16. FLUCLOXACILLIN [Concomitant]
     Dosage: UNKNOWN
  17. FENTANYL [Concomitant]
     Dosage: 75 MG FREQUENCY UNKNOWN
     Dates: start: 20090108, end: 20090111
  18. METOCLOPRAMIDE [Concomitant]
     Dosage: UNKNOWN
  19. MAGNESIUM HYDROXIDE TAB [Concomitant]
     Dosage: UNKNOWN
  20. DOCUSATE SODIUM [Concomitant]
     Dosage: UNKNOWN
     Dates: start: 20081203

REACTIONS (5)
  - CONCOMITANT DISEASE PROGRESSION [None]
  - DRUG INEFFECTIVE [None]
  - LUNG CANCER METASTATIC [None]
  - METASTATIC GASTRIC CANCER [None]
  - MUSCLE SPASMS [None]
